FAERS Safety Report 12348781 (Version 1)
Quarter: 2016Q2

REPORT INFORMATION
  Report Type: Spontaneous
  Country: US (occurrence: US)
  Receive Date: 20160509
  Receipt Date: 20160509
  Transmission Date: 20160815
  Serious: Yes (Life-Threatening, Hospitalization, Other)
  Sender: FDA-Public Use
  Company Number: US-ASTRAZENECA-2016SE49265

PATIENT
  Age: 18526 Day
  Sex: Female
  Weight: 66.7 kg

DRUGS (12)
  1. PROZAC [Concomitant]
     Active Substance: FLUOXETINE HYDROCHLORIDE
  2. KLONOPIN [Concomitant]
     Active Substance: CLONAZEPAM
  3. CELEBREX [Concomitant]
     Active Substance: CELECOXIB
  4. NUVIGIL [Concomitant]
     Active Substance: ARMODAFINIL
  5. SYNTHROID [Concomitant]
     Active Substance: LEVOTHYROXINE SODIUM
  6. SEROQUEL [Interacting]
     Active Substance: QUETIAPINE FUMARATE
     Route: 048
  7. GABAPENTIN. [Concomitant]
     Active Substance: GABAPENTIN
  8. SEROQUEL [Interacting]
     Active Substance: QUETIAPINE FUMARATE
     Route: 048
  9. WELLBUTRIN [Concomitant]
     Active Substance: BUPROPION HYDROCHLORIDE
  10. SEROQUEL [Suspect]
     Active Substance: QUETIAPINE FUMARATE
     Route: 048
  11. LAMICTAL [Concomitant]
     Active Substance: LAMOTRIGINE
  12. LATUDA [Interacting]
     Active Substance: LURASIDONE HYDROCHLORIDE
     Indication: DEPRESSION
     Route: 048
     Dates: start: 20160421, end: 20160422

REACTIONS (5)
  - Neuroleptic malignant syndrome [Recovered/Resolved]
  - Disorganised speech [Recovered/Resolved]
  - Restlessness [Recovered/Resolved]
  - Drug interaction [Unknown]
  - Disorientation [Recovered/Resolved]

NARRATIVE: CASE EVENT DATE: 20160422
